FAERS Safety Report 10878706 (Version 6)
Quarter: 2015Q3

REPORT INFORMATION
  Report Type: Report from Study
  Country: DE (occurrence: DE)
  Receive Date: 20150302
  Receipt Date: 20150707
  Transmission Date: 20151125
  Serious: Yes (Hospitalization, Other)
  Sender: FDA-Public Use
  Company Number: DE-GILEAD-2015-0131903

PATIENT
  Age: 62 Year
  Sex: Male
  Weight: 103 kg

DRUGS (15)
  1. SOFOSBUVIR [Suspect]
     Active Substance: SOFOSBUVIR
     Indication: HEPATITIS C
     Dosage: 400 MG, QD
     Route: 048
     Dates: start: 20141023, end: 20150408
  2. INSUMAN                            /00646001/ [Concomitant]
  3. BISOPROLOL RATIOPHARM [Concomitant]
     Active Substance: BISOPROLOL
     Dosage: 5 MG, UNK
     Dates: start: 20061101
  4. VALSACOR [Concomitant]
     Active Substance: VALSARTAN
     Dosage: 160 MG, UNK
  5. QUERTO [Concomitant]
     Dosage: UNK
     Dates: start: 20141211
  6. TORASEMID [Concomitant]
     Active Substance: TORSEMIDE
     Dosage: 10 MG, UNK
     Dates: start: 20141211
  7. AMLODIPINE [Concomitant]
     Active Substance: AMLODIPINE BESYLATE
     Dosage: 5 MG, QD
  8. XARELTO [Concomitant]
     Active Substance: RIVAROXABAN
     Dosage: 20 MG, QD
  9. INSPRA [Concomitant]
     Active Substance: EPLERENONE
     Dosage: 25 MG, QD
     Dates: start: 20141211
  10. KALINOR-BRAUSETABLETTEN [Concomitant]
     Active Substance: POTASSIUM CARBONATE\POTASSIUM CITRATE
     Dosage: UNK
     Dates: start: 20141211
  11. METOPROLOL [Concomitant]
     Active Substance: METOPROLOL
     Dosage: 95 MG, UNK
  12. PANTOZOL [Concomitant]
     Active Substance: PANTOPRAZOLE SODIUM
  13. DACLATASVIR DIHYDROCHLORIDE [Suspect]
     Active Substance: DACLATASVIR DIHYDROCHLORIDE
     Indication: HEPATITIS C
     Dosage: 60 MG, QD
     Route: 048
     Dates: start: 20141023, end: 20150408
  14. EUTHYROX [Concomitant]
     Active Substance: LEVOTHYROXINE SODIUM
     Dosage: 75 ?G, UNK
  15. VALSACOR [Concomitant]
     Active Substance: VALSARTAN
     Dosage: 80 UNK, UNK

REACTIONS (24)
  - Congestive cardiomyopathy [Recovered/Resolved]
  - Implantable defibrillator insertion [Recovered/Resolved]
  - Rash [Unknown]
  - Alopecia [Unknown]
  - Asthenia [Unknown]
  - Aortic valve stenosis [Unknown]
  - Fatigue [Unknown]
  - Headache [Recovered/Resolved]
  - Insomnia [Not Recovered/Not Resolved]
  - Arthralgia [Not Recovered/Not Resolved]
  - Irritability [Not Recovered/Not Resolved]
  - Depressed mood [Unknown]
  - Asthenia [Not Recovered/Not Resolved]
  - Nausea [Recovered/Resolved]
  - Restlessness [Not Recovered/Not Resolved]
  - Dyspnoea [Unknown]
  - Skin disorder [Unknown]
  - Left ventricular failure [Unknown]
  - Abdominal pain [Recovered/Resolved]
  - Disturbance in attention [Unknown]
  - Pruritus [Unknown]
  - Drug ineffective [Unknown]
  - Hepatitis C [Unknown]
  - Myalgia [Not Recovered/Not Resolved]

NARRATIVE: CASE EVENT DATE: 20141110
